FAERS Safety Report 25624311 (Version 1)
Quarter: 2025Q3

REPORT INFORMATION
  Report Type: Spontaneous
  Country: EU (occurrence: EU)
  Receive Date: 20250730
  Receipt Date: 20250730
  Transmission Date: 20251021
  Serious: Yes (Hospitalization)
  Sender: PFIZER
  Company Number: EU-DCGMA-25205560

PATIENT
  Age: 7 Year
  Sex: Male
  Weight: 35 kg

DRUGS (14)
  1. METHOTREXATE SODIUM [Suspect]
     Active Substance: METHOTREXATE SODIUM
     Indication: Acute lymphocytic leukaemia
     Route: 042
     Dates: start: 20250415, end: 20250415
  2. METHOTREXATE SODIUM [Suspect]
     Active Substance: METHOTREXATE SODIUM
     Route: 037
     Dates: start: 20250422, end: 20250422
  3. HYDROCORTISONE SODIUM SUCCINATE [Concomitant]
     Active Substance: HYDROCORTISONE SODIUM SUCCINATE
     Indication: Acute lymphocytic leukaemia
     Dosage: 15 MG, 1X/DAY
     Route: 048
     Dates: start: 20250415, end: 20250427
  4. DEXAMETHASONE SODIUM SUCCINATE [Concomitant]
     Active Substance: DEXAMETHASONE SODIUM SUCCINATE
     Indication: Acute lymphocytic leukaemia
     Dosage: 8 MG, 3X/DAY
     Route: 048
     Dates: start: 20250422, end: 20250427
  5. VINCRISTINE [Concomitant]
     Active Substance: VINCRISTINE
     Indication: Acute lymphocytic leukaemia
     Route: 042
     Dates: start: 20250415, end: 20250426
  6. CYCLOPHOSPHAMIDE [Concomitant]
     Active Substance: CYCLOPHOSPHAMIDE
     Indication: Acute lymphocytic leukaemia
     Dosage: 240 MG, 1X/DAY
     Route: 042
     Dates: start: 20250423, end: 20250425
  7. CYTARABINE [Concomitant]
     Active Substance: CYTARABINE
     Indication: Acute lymphocytic leukaemia
     Dosage: 2440 MG, 1X/DAY
     Route: 042
     Dates: start: 20250425, end: 20250426
  8. LEVOCARNITIN [Concomitant]
     Indication: Acute lymphocytic leukaemia
     Dosage: 2 G, 1X/DAY
     Route: 048
     Dates: start: 20250414, end: 20250427
  9. ENALAPRIL [Concomitant]
     Active Substance: ENALAPRIL
     Indication: Acute lymphocytic leukaemia
     Dosage: 7.5 MG, 2X/DAY
     Route: 048
     Dates: start: 20250414, end: 20250427
  10. AMPHOTERICIN B [Concomitant]
     Active Substance: AMPHOTERICIN B
     Indication: Acute lymphocytic leukaemia
     Dosage: 30 MG, 1X/DAY
     Route: 048
     Dates: start: 20250414, end: 20250427
  11. KALIUM [POTASSIUM CITRATE] [Concomitant]
     Indication: Hypokalaemia
     Route: 048
     Dates: start: 20250416, end: 20250418
  12. KALIUM [POTASSIUM CITRATE] [Concomitant]
     Indication: Hypokalaemia
     Dosage: 1800 MG, 3X/DAY
     Route: 048
     Dates: start: 20250418, end: 20250422
  13. PHYTONADIONE [Concomitant]
     Active Substance: PHYTONADIONE
     Dosage: 10 MG, 1X/DAY
     Route: 042
     Dates: start: 20250421, end: 20250423
  14. COTRIMOXAL [Concomitant]
     Dosage: 80 MG, 2X/DAY
     Route: 048
     Dates: start: 20250419, end: 20250420

REACTIONS (5)
  - Hypersensitivity [Recovered/Resolved]
  - Nausea [Recovered/Resolved]
  - Vomiting [Recovered/Resolved]
  - Hypokalaemia [Recovered/Resolved]
  - Rash [Recovered/Resolved]

NARRATIVE: CASE EVENT DATE: 20250401
